FAERS Safety Report 7693675-5 (Version None)
Quarter: 2011Q3

REPORT INFORMATION
  Report Type: 
  Country: None (occurrence: None)
  Receive Date: 20110819
  Receipt Date: 20110808
  Transmission Date: 20111222
  Serious: No
  Sender: FDA-Public Use
  Company Number: US-B.I. PHARMACEUTICALS,INC./RIDGEFIELD-2011-BP-19467BP

PATIENT
  Sex: Female

DRUGS (5)
  1. PRADAXA [Suspect]
     Indication: ATRIAL FIBRILLATION
     Dosage: 300 MG
     Route: 048
  2. ALPRAZOLAM [Concomitant]
     Indication: ANXIETY
     Dosage: 1 MG
     Route: 048
  3. SPIRONOLACTONE [Concomitant]
     Indication: FLUID RETENTION
     Dosage: 50 MG
     Route: 048
  4. VERAPAMIL [Concomitant]
     Indication: HYPERTENSION
     Dosage: 180 MG
     Route: 048
  5. NEXIUM [Concomitant]
     Indication: PROPHYLAXIS
     Dosage: 80 MG
     Route: 048

REACTIONS (2)
  - EAR PAIN [None]
  - BACK PAIN [None]
